FAERS Safety Report 4892461-9 (Version None)
Quarter: 2006Q1

REPORT INFORMATION
  Report Type: 
  Country: None (occurrence: None)
  Receive Date: 20060126
  Receipt Date: 20051130
  Transmission Date: 20060701
  Serious: Yes (Life-Threatening, Hospitalization, Disabling)
  Sender: FDA-Public Use
  Company Number: JP-MERCK-0512USA00595

PATIENT
  Age: 67 Year
  Sex: Male

DRUGS (11)
  1. PEPCID RPD [Suspect]
     Indication: PROPHYLAXIS
     Route: 048
     Dates: start: 20030916, end: 20030923
  2. PEPCID [Suspect]
     Indication: PROPHYLAXIS
     Route: 042
     Dates: start: 20030912, end: 20030915
  3. ADONA [Concomitant]
     Indication: HAEMORRHAGE CONTROL
     Route: 042
     Dates: start: 20030912, end: 20030916
  4. TRANSAMIN [Concomitant]
     Indication: HAEMORRHAGE CONTROL
     Route: 042
     Dates: start: 20030912, end: 20030916
  5. GLYCEOL [Concomitant]
     Indication: REDUCTION OF INCREASED INTRACRANIAL PRESSURE
     Route: 041
     Dates: start: 20030915, end: 20030923
  6. BISOLVON [Concomitant]
     Indication: PRODUCTIVE COUGH
     Route: 042
     Dates: start: 20030914, end: 20030917
  7. NAUZELIN [Concomitant]
     Indication: PROPHYLAXIS OF NAUSEA AND VOMITING
     Route: 048
     Dates: start: 20030916, end: 20030921
  8. LOXONIN [Concomitant]
     Indication: ANALGESIC EFFECT
     Route: 048
     Dates: start: 20030916, end: 20030921
  9. NORVASC [Concomitant]
     Indication: HYPERTENSION
     Route: 048
     Dates: start: 20030916, end: 20030921
  10. GLIMICRON [Concomitant]
     Indication: BLOOD GLUCOSE
     Route: 048
     Dates: end: 20030912
  11. HUMULIN R [Concomitant]
     Indication: BLOOD GLUCOSE
     Route: 065
     Dates: start: 20030912, end: 20040224

REACTIONS (8)
  - CEREBRAL HAEMORRHAGE [None]
  - DISSEMINATED INTRAVASCULAR COAGULATION [None]
  - HYDROCEPHALUS [None]
  - PLATELET COUNT DECREASED [None]
  - PNEUMONIA [None]
  - RESPIRATORY FAILURE [None]
  - SEPSIS [None]
  - WHITE BLOOD CELL COUNT DECREASED [None]
